FAERS Safety Report 5314157-1 (Version None)
Quarter: 2007Q2

REPORT INFORMATION
  Report Type: 
  Country: None (occurrence: None)
  Receive Date: 20070426
  Receipt Date: 20070413
  Transmission Date: 20071010
  Serious: Yes (Hospitalization)
  Sender: FDA-Public Use
  Company Number: S07-FRA-00243-01

PATIENT
  Age: 84 Year
  Sex: Female

DRUGS (5)
  1. ESCITALOPRAM [Suspect]
     Indication: DRUG USE FOR UNKNOWN INDICATION
     Dosage: 10 MG QD PO
     Route: 048
     Dates: start: 20060501, end: 20060830
  2. LAMICTAL [Suspect]
     Indication: EPILEPSY
     Dosage: 100 MG QD PO
     Route: 048
     Dates: start: 20060808, end: 20060906
  3. LAMICTAL [Suspect]
     Indication: EPILEPSY
     Dosage: 75 MG QD PO
     Route: 048
     Dates: start: 20060728, end: 20060807
  4. LAMICTAL [Suspect]
     Indication: EPILEPSY
     Dosage: 50 MG QD PO
     Route: 048
     Dates: start: 20060717, end: 20060727
  5. LAMICTAL [Suspect]
     Indication: EPILEPSY
     Dosage: 25 MG QD PO
     Route: 048
     Dates: start: 20060706, end: 20060716

REACTIONS (5)
  - COORDINATION ABNORMAL [None]
  - DYSKINESIA [None]
  - EPILEPSY [None]
  - FALL [None]
  - MUSCLE DISORDER [None]
